FAERS Safety Report 7346982-X (Version None)
Quarter: 2011Q1

REPORT INFORMATION
  Report Type: 
  Country: None (occurrence: None)
  Receive Date: 20110311
  Receipt Date: 20110224
  Transmission Date: 20110831
  Serious: Yes (Hospitalization, Other)
  Sender: FDA-Public Use
  Company Number: PHHY2011DE16279

PATIENT
  Sex: Male

DRUGS (15)
  1. ALISKIREN [Suspect]
     Indication: HYPERTENSION
     Dosage: 150 MG, QD
     Route: 048
     Dates: start: 20100301
  2. DIURETICS [Concomitant]
  3. EFFIENT [Concomitant]
     Dosage: 10 MG, QD
     Route: 048
     Dates: start: 20100601
  4. DELIX [Concomitant]
     Dosage: 5 MG, UNK
     Route: 048
     Dates: start: 20040913
  5. DELIX [Concomitant]
     Dosage: 05 MG, UNK
     Route: 048
     Dates: start: 20060823
  6. ANGIOTENSIN CONVERTING ENZYME BLOCKERS [Concomitant]
     Dosage: UNK
     Dates: start: 20100401
  7. METOPROLOL SUCCINATE [Concomitant]
     Dosage: 95 MG, QD
     Dates: start: 20071011
  8. CALCIUM CHANNEL BLOCKERS [Concomitant]
     Dosage: UNK
     Dates: end: 20100301
  9. OMEPRAZOLE [Concomitant]
     Dosage: 20 MG, QD
     Route: 048
     Dates: start: 20050907, end: 20101019
  10. NITRATES [Concomitant]
  11. BLOPRESS [Concomitant]
     Dosage: 01 DF, QD
     Route: 048
     Dates: start: 20100301
  12. SYMBICORT [Concomitant]
     Dosage: 160/4.5 MG, ONCE A DAY
     Route: 048
     Dates: start: 20050406
  13. MOXONIDINE [Concomitant]
     Dosage: 0.4 MG, QD
     Route: 048
     Dates: start: 20100421, end: 20101019
  14. ASPIRIN [Concomitant]
     Dosage: 100 MG, QD
     Route: 048
     Dates: start: 20040719
  15. INEGY [Concomitant]
     Dosage: UNK
     Route: 048
     Dates: start: 20080815

REACTIONS (8)
  - CARDIAC FAILURE [None]
  - CHRONIC OBSTRUCTIVE PULMONARY DISEASE [None]
  - GASTRITIS [None]
  - ABDOMINAL DISCOMFORT [None]
  - PANIC ATTACK [None]
  - HYPERTENSION [None]
  - SPINE MALFORMATION [None]
  - ANGINA PECTORIS [None]
